FAERS Safety Report 8187912-0 (Version None)
Quarter: 2012Q1

REPORT INFORMATION
  Report Type: 
  Country: None (occurrence: None)
  Receive Date: 20120306
  Receipt Date: 20111019
  Transmission Date: 20120608
  Serious: Yes (Other)
  Sender: FDA-Public Use
  Company Number: CA-GLAXOSMITHKLINE-A0949763A

PATIENT
  Sex: Male
  Weight: 84.1 kg

DRUGS (4)
  1. FLU SHOT [Concomitant]
     Dates: start: 20111015, end: 20111015
  2. ADVAIR DISKUS 100/50 [Suspect]
     Indication: CHRONIC OBSTRUCTIVE PULMONARY DISEASE
     Dosage: 1PUFF TWICE PER DAY
     Route: 055
     Dates: start: 20010101
  3. SPIRIVA [Concomitant]
  4. BRICANYL [Concomitant]

REACTIONS (6)
  - LUNG NEOPLASM MALIGNANT [None]
  - RESPIRATORY TRACT CONGESTION [None]
  - PAIN [None]
  - ARTHRALGIA [None]
  - DYSPNOEA [None]
  - INFLUENZA [None]
